FAERS Safety Report 10928557 (Version 5)
Quarter: 2015Q2

REPORT INFORMATION
  Report Type: Spontaneous
  Country: FR (occurrence: FR)
  Receive Date: 20150319
  Receipt Date: 20150619
  Transmission Date: 20150821
  Serious: Yes (Hospitalization, Disabling, Other)
  Sender: FDA-Public Use
  Company Number: FR-INCYTE CORPORATION-2015IN001018

PATIENT
  Age: 85 Year
  Sex: Male
  Weight: 90 kg

DRUGS (11)
  1. PREVISCAN [Concomitant]
     Active Substance: FLUINDIONE
     Dosage: UNKNOWN
     Dates: end: 20150113
  2. JAKAFI [Suspect]
     Active Substance: RUXOLITINIB
     Dosage: 20 MG, BID
     Route: 048
  3. JAKAFI [Suspect]
     Active Substance: RUXOLITINIB
     Dosage: UNKNOWN
     Dates: start: 20150225
  4. IMOVANE [Concomitant]
     Active Substance: ZOPICLONE
     Dosage: UNKNOWN
  5. PREVISCAN [Concomitant]
     Active Substance: FLUINDIONE
     Route: 065
  6. COUMADIN [Suspect]
     Active Substance: WARFARIN SODIUM
     Indication: ATRIAL FIBRILLATION
     Dosage: UNKNOWN
     Route: 065
     Dates: start: 20150113, end: 20150208
  7. FORLAX [Concomitant]
     Active Substance: POLYETHYLENE GLYCOL 4000
     Dosage: UNKNOWN
     Route: 065
  8. ARANESP [Concomitant]
     Active Substance: DARBEPOETIN ALFA
     Dosage: UNKNOWN
  9. ATERAX [Concomitant]
     Active Substance: HYDROXYZINE HYDROCHLORIDE
     Dosage: UNKNOWN
     Route: 065
  10. JAKAFI [Suspect]
     Active Substance: RUXOLITINIB
     Indication: MYELOFIBROSIS
     Dosage: 15 MG, BID
     Route: 048
     Dates: start: 20140808
  11. NORSET [Concomitant]
     Active Substance: MIRTAZAPINE
     Dosage: UNKNOWN

REACTIONS (5)
  - Muscle injury [Not Recovered/Not Resolved]
  - Thrombocytopenia [Recovering/Resolving]
  - Streptococcal sepsis [Recovering/Resolving]
  - Peripheral sensory neuropathy [Not Recovered/Not Resolved]
  - Haemarthrosis [Recovering/Resolving]

NARRATIVE: CASE EVENT DATE: 20150209
